FAERS Safety Report 6204918-9 (Version None)
Quarter: 2009Q2

REPORT INFORMATION
  Report Type: 
  Country: None (occurrence: None)
  Receive Date: 20090526
  Receipt Date: 20090512
  Transmission Date: 20091009
  Serious: Yes (Hospitalization, Other)
  Sender: FDA-Public Use
  Company Number: 000823

PATIENT
  Age: 71 Year
  Sex: Male

DRUGS (1)
  1. ALPROSTADIL [Suspect]
     Dates: start: 20090429

REACTIONS (3)
  - DRUG HYPERSENSITIVITY [None]
  - DRUG TOXICITY [None]
  - RHABDOMYOLYSIS [None]
